FAERS Safety Report 8578038 (Version 3)
Quarter: 2013Q3

REPORT INFORMATION
  Report Type: Spontaneous
  Country: ES (occurrence: ES)
  Receive Date: 20120524
  Receipt Date: 20130820
  Transmission Date: 20140515
  Serious: Yes (Death)
  Sender: FDA-Public Use
  Company Number: ES-SANOFI-AVENTIS-2012SA036356

PATIENT
  Age: 63 Year
  Sex: Male
  Weight: 105 kg

DRUGS (24)
  1. JEVTANA [Suspect]
     Indication: PROSTATE CANCER METASTATIC
     Route: 041
     Dates: start: 20120306, end: 20120306
  2. JEVTANA [Suspect]
     Indication: PROSTATE CANCER METASTATIC
     Route: 041
     Dates: start: 20120324, end: 20120324
  3. JEVTANA [Suspect]
     Indication: PROSTATE CANCER METASTATIC
     Route: 041
     Dates: start: 20120417, end: 20120417
  4. JEVTANA [Suspect]
     Indication: PROSTATE CANCER METASTATIC
     Route: 041
     Dates: start: 20120508, end: 20120508
  5. OMEPRAZOLE [Concomitant]
     Indication: PROPHYLAXIS
  6. CALCIUM [Concomitant]
     Indication: METASTASES TO BONE
  7. TRANXILIUM [Concomitant]
     Indication: ANXIETY
  8. NEBIVOLOL [Concomitant]
     Indication: HYPERTENSION
  9. ESCITALOPRAM [Concomitant]
     Indication: ANXIETY
  10. LYRICA [Concomitant]
     Indication: NEURALGIA
  11. PREDNISONE [Concomitant]
     Indication: PROSTATE CANCER
  12. CLEXANE [Concomitant]
     Indication: PULMONARY EMBOLISM
     Route: 058
  13. ATROVENT [Concomitant]
  14. LACTULOSE [Concomitant]
     Indication: CONSTIPATION
  15. SERC [Concomitant]
     Indication: VERTIGO
  16. SALBUTAMOL [Concomitant]
     Indication: BRONCHOSPASM
     Route: 055
  17. HYDROCHLOROTHIAZIDE/IRBESARTAN [Concomitant]
     Indication: HYPERTENSION
     Dosage: 12.5 MG/150 MG DOSE
  18. DUROGESIC [Concomitant]
     Indication: BONE PAIN
  19. G-CSF [Concomitant]
     Indication: PROPHYLAXIS
     Dates: start: 20120418, end: 20120422
  20. ONDANSETRON [Concomitant]
     Indication: PREMEDICATION
     Route: 042
  21. RANITIDINE [Concomitant]
     Indication: PREMEDICATION
     Route: 042
  22. DEXAMETHASONE [Concomitant]
     Indication: PREMEDICATION
     Route: 042
  23. CHLORPHENIRAMINE [Concomitant]
     Indication: PREMEDICATION
     Route: 042
  24. ZOLEDRONIC ACID [Concomitant]
     Indication: PROSTATE CANCER METASTATIC
     Route: 042

REACTIONS (1)
  - Sudden death [Fatal]
